FAERS Safety Report 4339342-7 (Version None)
Quarter: 2004Q2

REPORT INFORMATION
  Report Type: 
  Country: None (occurrence: None)
  Receive Date: 20040414
  Receipt Date: 20040414
  Transmission Date: 20050107
  Serious: No
  Sender: FDA-Public Use
  Company Number: None

PATIENT
  Age: 32 Year
  Sex: Female
  Weight: 52.1637 kg

DRUGS (8)
  1. CELEXA [Suspect]
     Indication: ANGER
     Dosage: 20 MG DAILY ORAL
     Route: 048
     Dates: start: 20031029, end: 20031205
  2. CELEXA [Suspect]
     Indication: CONFUSIONAL STATE
     Dosage: 20 MG DAILY ORAL
     Route: 048
     Dates: start: 20031029, end: 20031205
  3. CELEXA [Suspect]
     Indication: DEPRESSION
     Dosage: 20 MG DAILY ORAL
     Route: 048
     Dates: start: 20031029, end: 20031205
  4. CELEXA [Suspect]
     Indication: INSOMNIA
     Dosage: 20 MG DAILY ORAL
     Route: 048
     Dates: start: 20031029, end: 20031205
  5. CELEXA [Suspect]
     Indication: ANGER
     Dosage: 20 MG DAILY ORAL
     Route: 048
     Dates: start: 20041216, end: 20040413
  6. CELEXA [Suspect]
     Indication: CONFUSIONAL STATE
     Dosage: 20 MG DAILY ORAL
     Route: 048
     Dates: start: 20041216, end: 20040413
  7. CELEXA [Suspect]
     Indication: DEPRESSION
     Dosage: 20 MG DAILY ORAL
     Route: 048
     Dates: start: 20041216, end: 20040413
  8. CELEXA [Suspect]
     Indication: INSOMNIA
     Dosage: 20 MG DAILY ORAL
     Route: 048
     Dates: start: 20041216, end: 20040413

REACTIONS (5)
  - COORDINATION ABNORMAL [None]
  - DYSPHEMIA [None]
  - FATIGUE [None]
  - FEELING HOT [None]
  - HYPERHIDROSIS [None]
